FAERS Safety Report 8455549-1 (Version None)
Quarter: 2012Q2

REPORT INFORMATION
  Report Type: 
  Country: None (occurrence: None)
  Receive Date: 20120621
  Receipt Date: 20120614
  Transmission Date: 20120825
  Serious: Yes (Hospitalization, Other)
  Sender: FDA-Public Use
  Company Number: JP-PFIZER INC-2012117492

PATIENT
  Age: 45 Year
  Sex: Female

DRUGS (3)
  1. AMOXAPINE [Suspect]
     Dosage: UNK
     Route: 048
  2. HALCION [Suspect]
     Dosage: UNK
     Route: 048
  3. LORAZEPAM [Suspect]
     Dosage: UNK
     Route: 048

REACTIONS (2)
  - OVERDOSE [None]
  - BLOOD GLUCOSE DECREASED [None]
